FAERS Safety Report 4687697-6 (Version None)
Quarter: 2005Q2

REPORT INFORMATION
  Report Type: 
  Country: None (occurrence: None)
  Receive Date: 20050610
  Receipt Date: 20050601
  Transmission Date: 20051028
  Serious: Yes (Hospitalization, Congenital Anomaly)
  Sender: FDA-Public Use
  Company Number: 200515074GDDC

PATIENT
  Age: 0 Year
  Sex: Male

DRUGS (6)
  1. BRICANYL [Suspect]
     Indication: ASTHMA
     Route: 055
     Dates: start: 20040415
  2. POLARAMINE [Suspect]
     Indication: VARICELLA
     Route: 048
     Dates: start: 20040612
  3. CLAMOXYL [Suspect]
     Indication: URINARY TRACT INFECTION
     Route: 048
     Dates: start: 20040612, end: 20040619
  4. ZOVIRAX [Suspect]
     Indication: VARICELLA
     Route: 048
     Dates: start: 20040612, end: 20040613
  5. ZELITREX [Suspect]
     Indication: VARICELLA
     Route: 048
     Dates: start: 20040614
  6. DIFFU K [Concomitant]

REACTIONS (4)
  - CONGENITAL ANOMALY [None]
  - DRUG EXPOSURE DURING PREGNANCY [None]
  - KIDNEY MALFORMATION [None]
  - RENAL ATROPHY [None]
